FAERS Safety Report 18278073 (Version 1)
Quarter: 2020Q3

REPORT INFORMATION
  Report Type: Spontaneous
  Country: US (occurrence: US)
  Receive Date: 20200917
  Receipt Date: 20200917
  Transmission Date: 20201103
  Serious: No
  Sender: FDA-Public Use
  Company Number: US-CIRCASSIA PHARMACEUTICALS INC.-2019US010412

PATIENT
  Sex: Female
  Weight: 65.76 kg

DRUGS (2)
  1. TUDORZA PRESSAIR [Suspect]
     Active Substance: ACLIDINIUM BROMIDE
     Indication: CHRONIC OBSTRUCTIVE PULMONARY DISEASE
     Dosage: 400 UG, Q12H
     Route: 055
     Dates: end: 20190925
  2. VENTOLIN [Concomitant]
     Active Substance: ALBUTEROL SULFATE
     Indication: INHALATION THERAPY
     Dosage: UNK
     Route: 055

REACTIONS (2)
  - Product dose omission issue [Not Recovered/Not Resolved]
  - Device issue [Unknown]
